FAERS Safety Report 8898488 (Version 1)
Quarter: 2012Q4

REPORT INFORMATION
  Report Type: 
  Country: US (occurrence: US)
  Receive Date: 20121108
  Receipt Date: 20121108
  Transmission Date: 20130627
  Serious: No
  Sender: FDA-Public Use
  Company Number: US-AMGEN-USASP2012024033

PATIENT
  Sex: Male
  Weight: 92.97 kg

DRUGS (8)
  1. ENBREL [Suspect]
     Indication: PRODUCT USED FOR UNKNOWN INDICATION
     Dosage: 50 mg, qwk
     Route: 058
  2. NASONEX [Concomitant]
     Dosage: 50 mug, UNK
  3. NEXIUM                             /01479302/ [Concomitant]
     Dosage: 20 mg, UNK
  4. SYMBICORT [Concomitant]
     Dosage: UNK
  5. ALLEGRA [Concomitant]
     Dosage: 30 mg, UNK
  6. FLAXSEED OIL [Concomitant]
     Dosage: UNK
  7. GLUCOSAMINE + CHONDROITIN          /01430901/ [Concomitant]
  8. CULTURELLE [Concomitant]
     Dosage: UNK

REACTIONS (1)
  - Arthralgia [Unknown]
